FAERS Safety Report 24678787 (Version 2)
Quarter: 2024Q4

REPORT INFORMATION
  Report Type: Spontaneous
  Country: SI (occurrence: SI)
  Receive Date: 20241129
  Receipt Date: 20241222
  Transmission Date: 20250115
  Serious: Yes (Hospitalization, Other)
  Sender: AUROBINDO
  Company Number: SI-AUROBINDO-AUR-APL-2024-054770

PATIENT
  Age: 18 Year
  Sex: Female

DRUGS (33)
  1. OLANZAPINE [Suspect]
     Active Substance: OLANZAPINE
     Indication: Psychotic disorder
     Dosage: UNK
     Route: 065
  2. OLANZAPINE [Suspect]
     Active Substance: OLANZAPINE
     Indication: Paranoia
  3. OLANZAPINE [Suspect]
     Active Substance: OLANZAPINE
     Indication: Sleep disorder
  4. OLANZAPINE [Suspect]
     Active Substance: OLANZAPINE
     Indication: Bipolar disorder
  5. ARIPIPRAZOLE [Suspect]
     Active Substance: ARIPIPRAZOLE
     Indication: Agitation
     Dosage: UNK
     Route: 065
  6. ARIPIPRAZOLE [Suspect]
     Active Substance: ARIPIPRAZOLE
     Indication: Seizure
  7. ARIPIPRAZOLE [Suspect]
     Active Substance: ARIPIPRAZOLE
     Indication: Bipolar disorder
  8. MIRTAZAPINE [Suspect]
     Active Substance: MIRTAZAPINE
     Indication: Depression
     Route: 065
  9. RISPERIDONE [Suspect]
     Active Substance: RISPERIDONE
     Indication: Agitation
     Dosage: UNK
     Route: 065
  10. RISPERIDONE [Suspect]
     Active Substance: RISPERIDONE
     Indication: Seizure
  11. RISPERIDONE [Suspect]
     Active Substance: RISPERIDONE
     Indication: Bipolar disorder
  12. RISPERIDONE [Suspect]
     Active Substance: RISPERIDONE
     Indication: Antipsychotic therapy
  13. SERTRALINE [Suspect]
     Active Substance: SERTRALINE HYDROCHLORIDE
     Indication: Bipolar disorder
     Route: 065
  14. VENLAFAXINE [Suspect]
     Active Substance: VENLAFAXINE HYDROCHLORIDE
     Indication: Agitation
     Dosage: UNK
     Route: 065
  15. VENLAFAXINE [Suspect]
     Active Substance: VENLAFAXINE HYDROCHLORIDE
     Indication: Seizure
  16. CLONAZEPAM [Concomitant]
     Active Substance: CLONAZEPAM
     Indication: Agitation
     Dosage: UNK
     Route: 065
  17. CLONAZEPAM [Concomitant]
     Active Substance: CLONAZEPAM
     Indication: Insomnia
  18. CLONAZEPAM [Concomitant]
     Active Substance: CLONAZEPAM
     Indication: Seizure
  19. CARIPRAZINE [Concomitant]
     Active Substance: CARIPRAZINE
     Indication: Agitation
     Dosage: UNK
     Route: 065
  20. CARIPRAZINE [Concomitant]
     Active Substance: CARIPRAZINE
     Indication: Seizure
  21. FLUOXETINE [Concomitant]
     Active Substance: FLUOXETINE HYDROCHLORIDE
     Indication: Agitation
     Dosage: UNK
     Route: 065
  22. FLUOXETINE [Concomitant]
     Active Substance: FLUOXETINE HYDROCHLORIDE
     Indication: Seizure
  23. FLUOXETINE [Concomitant]
     Active Substance: FLUOXETINE HYDROCHLORIDE
     Indication: Bipolar disorder
  24. FLUOXETINE [Concomitant]
     Active Substance: FLUOXETINE HYDROCHLORIDE
     Indication: Depressed mood
  25. LORATADINE [Concomitant]
     Active Substance: LORATADINE
     Indication: Asthma
     Dosage: UNK, AS NECESSARY
     Route: 065
  26. LORATADINE [Concomitant]
     Active Substance: LORATADINE
     Indication: Rhinitis
  27. ALBUTEROL [Concomitant]
     Active Substance: ALBUTEROL
     Indication: Asthma
     Dosage: UNK, AS NECESSARY
     Route: 065
  28. ALBUTEROL [Concomitant]
     Active Substance: ALBUTEROL
     Indication: Rhinitis
  29. ARIPIPRAZOLE [Concomitant]
     Active Substance: ARIPIPRAZOLE
     Indication: Depressed mood
     Dosage: UNK
     Route: 065
  30. SERTRALINE [Concomitant]
     Active Substance: SERTRALINE HYDROCHLORIDE
     Indication: Depressed mood
     Dosage: UNK
     Route: 065
  31. LITHIUM CARBONATE [Concomitant]
     Active Substance: LITHIUM CARBONATE
     Indication: Bipolar disorder
     Dosage: UNK
     Route: 065
  32. MIRTAZAPINE [Concomitant]
     Active Substance: MIRTAZAPINE
     Indication: Antidepressant therapy
     Dosage: UNK
     Route: 065
  33. VENLAFAXINE [Concomitant]
     Active Substance: VENLAFAXINE HYDROCHLORIDE
     Indication: Agitation
     Dosage: UNK
     Route: 065

REACTIONS (14)
  - Aggression [Unknown]
  - Dyskinesia [Recovered/Resolved]
  - Drug ineffective [Recovering/Resolving]
  - Oculogyric crisis [Unknown]
  - Sleep disorder [Not Recovered/Not Resolved]
  - Brain fog [Unknown]
  - Bradyphrenia [Unknown]
  - Weight increased [Unknown]
  - Breast discharge [Unknown]
  - Increased appetite [Recovering/Resolving]
  - Amenorrhoea [Recovered/Resolved]
  - Paranoia [Recovered/Resolved]
  - Lactation disorder [Recovered/Resolved]
  - Off label use [Unknown]
